FAERS Safety Report 25622641 (Version 1)
Quarter: 2025Q3

REPORT INFORMATION
  Report Type: Spontaneous
  Country: CN (occurrence: CN)
  Receive Date: 20250730
  Receipt Date: 20250730
  Transmission Date: 20251020
  Serious: Yes (Other)
  Sender: COHERUS
  Company Number: CN-SHANGHAI JUNSHI BIOSCIENCES CO., LTD.-CN2025015046

PATIENT

DRUGS (8)
  1. TORIPALIMAB [Suspect]
     Active Substance: TORIPALIMAB
     Indication: Small cell lung cancer
     Dosage: 240 MG, EVERY 21 DAYS,D1
     Route: 041
     Dates: start: 20250523, end: 20250523
  2. TORIPALIMAB [Suspect]
     Active Substance: TORIPALIMAB
     Dosage: 240 MG, EVERY 21 DAYS,D1
     Route: 041
     Dates: start: 20250614, end: 20250614
  3. ETOPOSIDE [Suspect]
     Active Substance: ETOPOSIDE
     Indication: Small cell lung cancer
     Dosage: 148 MG, EVERY 21 DAYS, D1-3
     Dates: start: 20250430, end: 20250502
  4. ETOPOSIDE [Suspect]
     Active Substance: ETOPOSIDE
     Dosage: 148 MG, EVERY 21 DAYS, D1-3
     Dates: start: 20250523, end: 20250525
  5. ETOPOSIDE [Suspect]
     Active Substance: ETOPOSIDE
     Dosage: 148 MG, EVERY 21 DAYS, D1-3
     Dates: start: 20250614, end: 20250616
  6. CISPLATIN [Suspect]
     Active Substance: CISPLATIN
     Indication: Small cell lung cancer
     Dosage: 35 MG, EVERY 21 DAYS,,D1-3
     Dates: start: 20250430, end: 20250502
  7. CISPLATIN [Suspect]
     Active Substance: CISPLATIN
     Dosage: 35 MG, EVERY 21 DAYS
     Dates: start: 20250523, end: 20250525
  8. CISPLATIN [Suspect]
     Active Substance: CISPLATIN
     Dosage: 35 MG, EVERY 21 DAYS
     Dates: start: 20250614, end: 20250616

REACTIONS (1)
  - Myelosuppression [Recovering/Resolving]

NARRATIVE: CASE EVENT DATE: 20250703
